FAERS Safety Report 25231898 (Version 1)
Quarter: 2025Q2

REPORT INFORMATION
  Report Type: Spontaneous
  Country: FR (occurrence: FR)
  Receive Date: 20250423
  Receipt Date: 20250423
  Transmission Date: 20250717
  Serious: Yes (Other)
  Sender: MYLAN
  Company Number: None

PATIENT
  Age: 61 Year
  Sex: Male

DRUGS (2)
  1. LYRICA [Suspect]
     Active Substance: PREGABALIN
     Indication: Product used for unknown indication
     Dosage: 100 MILLIGRAM, BID, 200 MG/DAY (100 MG MORNING AND EVENING)
     Dates: start: 2005
  2. TRAMADOL [Suspect]
     Active Substance: TRAMADOL
     Indication: Product used for unknown indication
     Dosage: 100 MILLIGRAM, BID, 100 MG IN LP FORM MORNING AND EVENING (200 MG/DAY)
     Dates: start: 2005

REACTIONS (1)
  - Drug use disorder [Not Recovered/Not Resolved]
